FAERS Safety Report 6228942-5 (Version None)
Quarter: 2009Q2

REPORT INFORMATION
  Report Type: 
  Country: None (occurrence: None)
  Receive Date: 20090615
  Receipt Date: 20090608
  Transmission Date: 20091009
  Serious: Yes (Death, Hospitalization, Other)
  Sender: FDA-Public Use
  Company Number: CZ-ROCHE-636860

PATIENT
  Age: 69 Year
  Sex: Male

DRUGS (11)
  1. INTERFERON ALFA [Suspect]
     Dosage: DOSE: 6 MU; RECEIVED FOR ONE YEAR
     Route: 065
  2. RITUXIMAB [Suspect]
     Route: 065
     Dates: start: 20030101
  3. RITUXIMAB [Suspect]
     Dosage: 4 DOSES AS MONOTHERAPY
     Route: 065
     Dates: start: 20050601
  4. RITUXIMAB [Suspect]
     Dosage: 4 CYCLES
     Route: 065
     Dates: start: 20060501
  5. CYCLOPHOSPHAMIDE [Suspect]
     Dosage: 6 CYCLES
     Route: 048
     Dates: start: 20030101
  6. CYCLOPHOSPHAMIDE [Suspect]
     Dosage: 4 CYCLES
     Route: 048
     Dates: start: 20060501
  7. HYDROXYDAUNOMYCIN [Suspect]
     Dosage: 6 CYCLES
     Route: 065
     Dates: start: 20030101
  8. ONCOVIN [Suspect]
     Dosage: 6 CYCLES
     Route: 065
     Dates: start: 20030101
  9. PREDNISONE [Suspect]
     Dosage: 6 CYCLES
     Route: 065
     Dates: start: 20030101
  10. FLUDARABINE PHOSPHATE [Suspect]
     Route: 048
     Dates: start: 20060501
  11. CHLORAMBUCIL [Concomitant]

REACTIONS (5)
  - MALIGNANT NEOPLASM PROGRESSION [None]
  - MULTI-ORGAN FAILURE [None]
  - PNEUMONIA FUNGAL [None]
  - PROGRESSIVE MULTIFOCAL LEUKOENCEPHALOPATHY [None]
  - SEPTIC SHOCK [None]
